FAERS Safety Report 10750334 (Version 3)
Quarter: 2015Q1

REPORT INFORMATION
  Report Type: Spontaneous
  Country: IT (occurrence: IT)
  Receive Date: 20150130
  Receipt Date: 20150224
  Transmission Date: 20150721
  Serious: Yes (Other)
  Sender: FDA-Public Use
  Company Number: IT-ROCHE-1527063

PATIENT
  Age: 43 Year
  Sex: Female
  Weight: 57 kg

DRUGS (4)
  1. HERCEPTIN [Suspect]
     Active Substance: TRASTUZUMAB
     Indication: BREAST CANCER METASTATIC
     Route: 042
     Dates: start: 20140506, end: 20141223
  2. PERJETA [Suspect]
     Active Substance: PERTUZUMAB
     Indication: BREAST CANCER METASTATIC
     Route: 042
     Dates: start: 20140617, end: 20141223
  3. CLEXANE [Concomitant]
     Active Substance: ENOXAPARIN SODIUM
  4. TAXOTERE [Suspect]
     Active Substance: DOCETAXEL
     Indication: BREAST CANCER METASTATIC
     Route: 042
     Dates: start: 20140506, end: 20141223

REACTIONS (2)
  - Rash [Unknown]
  - Herpes dermatitis [Unknown]

NARRATIVE: CASE EVENT DATE: 20141223
